FAERS Safety Report 6500471-0 (Version None)
Quarter: 2009Q4

REPORT INFORMATION
  Report Type: 
  Country: None (occurrence: None)
  Receive Date: 20091216
  Receipt Date: 20091208
  Transmission Date: 20100525
  Serious: Yes (Other)
  Sender: FDA-Public Use
  Company Number: US-SANOFI-AVENTIS-2009SA007624

PATIENT
  Age: 54 Year
  Sex: Male

DRUGS (5)
  1. MULTAQ [Suspect]
     Indication: ARRHYTHMIA
     Route: 048
     Dates: start: 20090901
  2. LANTUS [Suspect]
     Dosage: STARTED A FEW YEARS AGO 180U AM, 160U PM
     Route: 058
  3. LANTUS [Suspect]
     Route: 058
  4. COUMADIN [Suspect]
     Route: 065
  5. NOVOLOG [Concomitant]

REACTIONS (2)
  - BLOOD GLUCOSE DECREASED [None]
  - INTERNATIONAL NORMALISED RATIO INCREASED [None]
